FAERS Safety Report 9682950 (Version 1)
Quarter: 2013Q4

REPORT INFORMATION
  Report Type: Spontaneous
  Country: FR (occurrence: FR)
  Receive Date: 20131112
  Receipt Date: 20131112
  Transmission Date: 20140711
  Serious: Yes (Hospitalization)
  Sender: FDA-Public Use
  Company Number: FR-SA-2013SA112863

PATIENT
  Age: 62 Year
  Sex: Male

DRUGS (14)
  1. RIFADINE [Suspect]
     Indication: TUBERCULOSIS
     Route: 048
     Dates: start: 20130907
  2. PIRILENE [Suspect]
     Indication: TUBERCULOSIS
     Route: 048
     Dates: start: 20130907
  3. RIMIFON [Suspect]
     Indication: TUBERCULOSIS
     Route: 048
     Dates: start: 20130907
  4. DEXAMBUTOL [Suspect]
     Indication: TUBERCULOSIS
     Route: 048
     Dates: start: 20130907
  5. LASILIX [Concomitant]
  6. KARDEGIC [Concomitant]
  7. CREON [Concomitant]
  8. AMLOR [Concomitant]
  9. SPIRIVA [Concomitant]
  10. BRICANYL [Concomitant]
  11. LANTUS [Concomitant]
  12. ACTRAPID [Concomitant]
  13. PARACETAMOL [Concomitant]
  14. CONTRAMAL [Concomitant]

REACTIONS (1)
  - Neuropathy peripheral [Not Recovered/Not Resolved]
